FAERS Safety Report 7067573-4 (Version None)
Quarter: 2010Q4

REPORT INFORMATION
  Report Type: 
  Country: None (occurrence: None)
  Receive Date: 20101028
  Receipt Date: 20101015
  Transmission Date: 20110411
  Serious: Yes (Other)
  Sender: FDA-Public Use
  Company Number: US-ELI_LILLY_AND_COMPANY-US201010004310

PATIENT
  Age: 70 Year
  Sex: Female
  Weight: 51.247 kg

DRUGS (3)
  1. FORTEO [Suspect]
     Indication: OSTEOPOROSIS
  2. EVISTA [Concomitant]
  3. BISPHOSPHONATES [Concomitant]

REACTIONS (1)
  - PELVIC FRACTURE [None]
